FAERS Safety Report 26195749 (Version 1)
Quarter: 2025Q4

REPORT INFORMATION
  Report Type: Spontaneous
  Country: US (occurrence: US)
  Receive Date: 20251224
  Receipt Date: 20251224
  Transmission Date: 20260118
  Serious: No
  Sender: SANDOZ
  Company Number: US-SANDOZ-SDZ2025US082956

PATIENT

DRUGS (1)
  1. IRON SUCROSE [Suspect]
     Active Substance: IRON SUCROSE
     Indication: Product used for unknown indication
     Dosage: IRON SUCROSE  100MG/5ML,  IRON HYDROXYDE SUCROSE  COMPLEX

REACTIONS (3)
  - Myalgia [Unknown]
  - Paraesthesia [Unknown]
  - Arthralgia [Unknown]
